FAERS Safety Report 4957965-9 (Version None)
Quarter: 2006Q1

REPORT INFORMATION
  Report Type: 
  Country: None (occurrence: None)
  Receive Date: 20060330
  Receipt Date: 20051017
  Transmission Date: 20060701
  Serious: Yes (Hospitalization, Disabling)
  Sender: FDA-Public Use
  Company Number: US-MERCK-0510USA07695

PATIENT
  Age: 42 Year
  Sex: Male
  Weight: 98 kg

DRUGS (6)
  1. VIOXX [Suspect]
     Indication: MONARTHRITIS
     Route: 048
     Dates: start: 20000614, end: 20011216
  2. DECA-DURABOLIN [Concomitant]
     Route: 065
     Dates: start: 20010801
  3. TYLENOL W/ CODEINE NO. 3 [Concomitant]
     Route: 065
  4. CEPHALEXIN [Concomitant]
     Route: 065
  5. IBUPROFEN [Concomitant]
     Route: 065
  6. VEETIDS [Concomitant]
     Route: 065

REACTIONS (8)
  - ACUTE MYOCARDIAL INFARCTION [None]
  - BRONCHITIS [None]
  - CHEST PAIN [None]
  - CORONARY ARTERY DISEASE [None]
  - DYSLIPIDAEMIA [None]
  - DYSPEPSIA [None]
  - HYPERLIPIDAEMIA [None]
  - PRODUCTIVE COUGH [None]
